FAERS Safety Report 25314631 (Version 1)
Quarter: 2025Q2

REPORT INFORMATION
  Report Type: Spontaneous
  Country: US (occurrence: US)
  Receive Date: 20250514
  Receipt Date: 20250514
  Transmission Date: 20250717
  Serious: Yes (Hospitalization)
  Sender: NOVO NORDISK
  Company Number: US-NOVOPROD-1419138

PATIENT
  Age: 65 Year
  Sex: Female

DRUGS (1)
  1. INSULIN ASPART [Suspect]
     Active Substance: INSULIN ASPART
     Indication: Diabetes mellitus
     Dates: start: 2023

REACTIONS (2)
  - Blood glucose decreased [Unknown]
  - Diabetic ketoacidosis [Unknown]
